FAERS Safety Report 6437944-5 (Version None)
Quarter: 2009Q4

REPORT INFORMATION
  Report Type: 
  Country: None (occurrence: None)
  Receive Date: 20091112
  Receipt Date: 20091102
  Transmission Date: 20100525
  Serious: Yes (Other)
  Sender: FDA-Public Use
  Company Number: US-AMGEN-QUU366134

PATIENT
  Sex: Male

DRUGS (5)
  1. ENBREL [Suspect]
     Indication: DRUG USE FOR UNKNOWN INDICATION
     Dates: start: 20070101, end: 20090827
  2. METHOTREXATE [Concomitant]
     Route: 048
     Dates: start: 20061201
  3. SULFADIAZINE [Concomitant]
     Dates: start: 20061201
  4. FOLIC ACID [Concomitant]
     Dates: start: 20060101
  5. PREDNISONE [Concomitant]
     Dates: start: 20090922

REACTIONS (1)
  - PULMONARY TUBERCULOSIS [None]
